FAERS Safety Report 5066404-1 (Version None)
Quarter: 2006Q3

REPORT INFORMATION
  Report Type: 
  Country: None (occurrence: None)
  Receive Date: 20060801
  Receipt Date: 20060629
  Transmission Date: 20061208
  Serious: Yes (Life-Threatening, Other)
  Sender: FDA-Public Use
  Company Number: US-BAYER-200614367BWH

PATIENT
  Age: 51 Year
  Sex: Male

DRUGS (4)
  1. TRASYLOL [Suspect]
     Indication: AORTIC SURGERY
     Dosage: UNIT DOSE: 10000 KIU
     Route: 042
     Dates: start: 20060629, end: 20060629
  2. TRASYLOL [Suspect]
     Dosage: UNIT DOSE: 500000 KIU
     Route: 042
     Dates: start: 20060629, end: 20060629
  3. VANCOMYCIN [Concomitant]
     Route: 042
  4. CEFTRIAXONE [Concomitant]
     Route: 042

REACTIONS (2)
  - ANAPHYLACTIC REACTION [None]
  - ELECTROMECHANICAL DISSOCIATION [None]
